FAERS Safety Report 23305518 (Version 3)
Quarter: 2024Q3

REPORT INFORMATION
  Report Type: Spontaneous
  Country: US (occurrence: US)
  Receive Date: 20231218
  Receipt Date: 20240902
  Transmission Date: 20241017
  Serious: Yes (Hospitalization)
  Sender: ROCHE
  Company Number: US-ROCHE-3474286

PATIENT
  Age: 88 Year
  Sex: Male

DRUGS (1)
  1. TNKASE [Suspect]
     Active Substance: TENECTEPLASE
     Indication: Off label use
     Route: 065

REACTIONS (4)
  - Lethargy [Unknown]
  - Off label use [Unknown]
  - Haemorrhagic transformation stroke [Unknown]
  - Petechiae [Unknown]
